FAERS Safety Report 7363171-3 (Version None)
Quarter: 2011Q1

REPORT INFORMATION
  Report Type: 
  Country: None (occurrence: None)
  Receive Date: 20110321
  Receipt Date: 20110218
  Transmission Date: 20110831
  Serious: Yes (Other)
  Sender: FDA-Public Use
  Company Number: US-BAYER-200924399NA

PATIENT
  Sex: Male

DRUGS (7)
  1. TRASYLOL [Suspect]
     Indication: CORONARY ARTERY BYPASS
     Dosage: 200 ML, UNK
     Route: 042
     Dates: start: 20041231
  2. HEPARIN SODIUM [Concomitant]
  3. FENTANYL [Concomitant]
  4. NOREPINEPHRINE BITARTRATE [Concomitant]
  5. VERSED [Concomitant]
  6. PAVULON [Concomitant]
  7. RED BLOOD CELLS [Concomitant]
     Dosage: 2 U, UNK
     Dates: start: 20041231

REACTIONS (11)
  - PAIN [None]
  - RENAL INJURY [None]
  - EMOTIONAL DISTRESS [None]
  - ANXIETY [None]
  - RENAL FAILURE [None]
  - RENAL IMPAIRMENT [None]
  - FEAR [None]
  - INJURY [None]
  - ANHEDONIA [None]
  - STRESS [None]
  - UNEVALUABLE EVENT [None]
